FAERS Safety Report 5212046-4 (Version None)
Quarter: 2007Q1

REPORT INFORMATION
  Report Type: 
  Country: None (occurrence: None)
  Receive Date: 20070118
  Receipt Date: 20070111
  Transmission Date: 20070707
  Serious: Yes (Other)
  Sender: FDA-Public Use
  Company Number: US-ELI_LILLY_AND_COMPANY-US200701002759

PATIENT
  Age: 54 Year
  Sex: Female

DRUGS (1)
  1. GEMZAR [Suspect]
     Indication: LUNG ADENOCARCINOMA
     Dosage: 1000 MG/M2, OTHER

REACTIONS (2)
  - MYOSITIS [None]
  - RECALL PHENOMENON [None]
